FAERS Safety Report 25522441 (Version 1)
Quarter: 2025Q3

REPORT INFORMATION
  Report Type: Spontaneous
  Country: EU (occurrence: EU)
  Receive Date: 20250707
  Receipt Date: 20250707
  Transmission Date: 20251021
  Serious: No
  Sender: ALKEM
  Company Number: EU-ALKEM LABORATORIES LIMITED-FR-ALKEM-2024-08707

PATIENT
  Age: 73 Year
  Sex: Female

DRUGS (16)
  1. DRONABINOL [Suspect]
     Active Substance: DRONABINOL
     Indication: Neuralgia
     Dosage: 2.5 MILLIGRAM, TID (CAPSULE MOLLE)
     Route: 065
  2. DRONABINOL [Suspect]
     Active Substance: DRONABINOL
     Indication: Multiple sclerosis
     Dosage: 10 MILLIGRAM, QD (1 CAPSULE IN THE MORNING, 1 AT NOON AND 2 IN THE EVENING)
     Route: 048
  3. DRONABINOL [Suspect]
     Active Substance: DRONABINOL
     Dosage: 4 DOSAGE FORM, CAPSULE QD (3 INTAKES 1 IN THE MORNING 1 AT NOON AND 2 IN THE EVENING)
     Route: 065
  4. DRONABINOL [Suspect]
     Active Substance: DRONABINOL
     Dosage: 10 MILLIGRAM, QD (ONE CAPSULE IN THE MORNING, ONE CAPSULE AT NOON AND TWO CAPSULES IN THE EVENING)
     Route: 065
  5. DRONABINOL [Suspect]
     Active Substance: DRONABINOL
     Dosage: 10 MILLIGRAM, QD (4 DAILY INTAKES (1-1-1-1))
     Route: 065
     Dates: start: 20250113
  6. DRONABINOL [Suspect]
     Active Substance: DRONABINOL
     Route: 065
  7. DRONABINOL [Suspect]
     Active Substance: DRONABINOL
     Dosage: 10 MILLIGRAM, QID (CAPSULE MOLLE) (IN 4 INTAKES (1-1-1-1))
     Route: 065
  8. ALPRAZOLAM [Concomitant]
     Active Substance: ALPRAZOLAM
     Indication: Anxiety
     Dosage: 0.25 MILLIGRAM, TID (3 TIMES A DAY)
     Route: 065
  9. BACLOFEN [Concomitant]
     Active Substance: BACLOFEN
     Indication: Multiple sclerosis
     Route: 065
  10. BACLOFEN [Concomitant]
     Active Substance: BACLOFEN
     Route: 065
  11. GABAPENTIN [Concomitant]
     Active Substance: GABAPENTIN
     Indication: Product used for unknown indication
     Dosage: UNK, TID (200-200-700)
     Route: 065
  12. FENOFIBRATE [Concomitant]
     Active Substance: FENOFIBRATE
     Indication: Dyslipidaemia
     Route: 065
  13. INIPOMP [Concomitant]
     Active Substance: PANTOPRAZOLE SODIUM
     Indication: Product used for unknown indication
     Route: 065
  14. ACETAMINOPHEN [Concomitant]
     Active Substance: ACETAMINOPHEN
     Indication: Product used for unknown indication
     Route: 065
  15. TEGRETOL [Concomitant]
     Active Substance: CARBAMAZEPINE
     Indication: Trigeminal neuralgia
     Route: 065
  16. ZOPICLONE [Concomitant]
     Active Substance: ZOPICLONE
     Indication: Insomnia
     Route: 065

REACTIONS (4)
  - Somnolence [Recovered/Resolved]
  - Off label use [Unknown]
  - Therapy interrupted [Unknown]
  - Product prescribing issue [Unknown]

NARRATIVE: CASE EVENT DATE: 20240723
